FAERS Safety Report 13632507 (Version 1)
Quarter: 2017Q2

REPORT INFORMATION
  Report Type: Spontaneous
  Country: US (occurrence: US)
  Receive Date: 20170608
  Receipt Date: 20170608
  Transmission Date: 20170830
  Serious: Yes (Disabling, Other)
  Sender: FDA-Public Use
  Company Number: US-REGENERON PHARMACEUTICALS, INC.-2017-16845

PATIENT

DRUGS (1)
  1. EYLEA [Suspect]
     Active Substance: AFLIBERCEPT
     Indication: NEOVASCULAR AGE-RELATED MACULAR DEGENERATION
     Dosage: 2 MG, BILATERAL EYE 8-9 WEEKS
     Route: 031
     Dates: start: 20151125, end: 20170522

REACTIONS (3)
  - Blindness [Unknown]
  - Endophthalmitis [Recovering/Resolving]
  - Eye infection staphylococcal [Recovering/Resolving]

NARRATIVE: CASE EVENT DATE: 20170522
